FAERS Safety Report 4648064-4 (Version None)
Quarter: 2005Q2

REPORT INFORMATION
  Report Type: 
  Country: None (occurrence: None)
  Receive Date: 20050331
  Receipt Date: 20041210
  Transmission Date: 20051028
  Serious: No
  Sender: FDA-Public Use
  Company Number: 04P-163-0284015-00

PATIENT
  Age: 64 Year
  Sex: Male

DRUGS (5)
  1. HUMIRA [Suspect]
     Indication: RHEUMATOID ARTHRITIS
     Dosage: 40 MG, 1 IN 2 WK, SUBCUTAENOUS
     Route: 058
     Dates: start: 20031212
  2. FOLIC ACID [Concomitant]
  3. ESOMEPRAZOLE [Concomitant]
  4. PROPACET 100 [Concomitant]
  5. LEFLUNOMIDE [Concomitant]

REACTIONS (3)
  - NASAL POLYPS [None]
  - PNEUMONIA [None]
  - SINUS CONGESTION [None]
